FAERS Safety Report 7137544-8 (Version None)
Quarter: 2010Q4

REPORT INFORMATION
  Report Type: 
  Country: None (occurrence: None)
  Receive Date: 20101206
  Receipt Date: 20101126
  Transmission Date: 20110411
  Serious: Yes (Hospitalization)
  Sender: FDA-Public Use
  Company Number: IT-BRISTOL-MYERS SQUIBB COMPANY-15398928

PATIENT
  Age: 73 Year
  Sex: Male

DRUGS (12)
  1. GLUCOPHAGE [Suspect]
     Indication: DIABETES MELLITUS
     Dosage: 1 DF:3 UNITS FORMULATION:1000G
     Route: 048
     Dates: start: 20090101, end: 20100922
  2. MODURETIC 5-50 [Suspect]
     Indication: MYOCARDIAL ISCHAEMIA
     Dosage: 1 DF:1 UNIT STRENGTH:5MG AND 50MG
     Route: 048
     Dates: start: 20090101, end: 20100922
  3. KANRENOL [Suspect]
     Indication: MYOCARDIAL ISCHAEMIA
     Dosage: 1 DF:1 UNIT FORMULATION:100MG
     Route: 048
     Dates: start: 20090101, end: 20100922
  4. LASIX [Suspect]
     Indication: MYOCARDIAL ISCHAEMIA
     Dosage: 1 DF:1 UNIT 25MG
     Route: 048
     Dates: start: 20090101, end: 20100922
  5. ENAPREN [Suspect]
     Indication: MYOCARDIAL ISCHAEMIA
     Dosage: 1 DF:1 UNIT 5 MG
     Route: 048
     Dates: start: 20090101, end: 20100922
  6. ALLOPURINOL [Concomitant]
     Route: 048
  7. ACETYL SALICYLIC ACID USP BAT [Concomitant]
     Route: 048
  8. ANTRA [Concomitant]
     Route: 048
  9. EUTIROX [Concomitant]
     Route: 048
  10. PRADIF [Concomitant]
     Route: 048
  11. CIPRALEX [Concomitant]
     Route: 048
  12. TENORMIN [Concomitant]
     Route: 048

REACTIONS (2)
  - HYPERKALAEMIA [None]
  - RENAL FAILURE CHRONIC [None]
